FAERS Safety Report 6698471-3 (Version None)
Quarter: 2010Q2

REPORT INFORMATION
  Report Type: 
  Country: None (occurrence: None)
  Receive Date: 20100427
  Receipt Date: 20100415
  Transmission Date: 20101027
  Serious: Yes (Hospitalization)
  Sender: FDA-Public Use
  Company Number: FR-SANOFI-AVENTIS-2010SA022007

PATIENT
  Age: 89 Year
  Sex: Female

DRUGS (10)
  1. INDAPAMIDE [Suspect]
     Indication: HYPERTENSION
     Route: 048
  2. COVERSYL /FRA/ [Suspect]
     Indication: HYPERTENSION
     Route: 048
     Dates: end: 20100226
  3. CALCIUM CARBONATE/MAGNESIUM CARBONATE/MENTHA X PIPERITA OIL [Suspect]
     Indication: DRUG USE FOR UNKNOWN INDICATION
     Route: 048
     Dates: start: 20100225, end: 20100225
  4. TAHOR [Suspect]
     Indication: DRUG USE FOR UNKNOWN INDICATION
     Route: 048
  5. PLAVIX [Suspect]
     Indication: ISCHAEMIC CARDIOMYOPATHY
     Route: 048
  6. ZOPICLONE [Suspect]
     Indication: DRUG USE FOR UNKNOWN INDICATION
     Route: 048
  7. ATARAX [Suspect]
     Indication: DRUG USE FOR UNKNOWN INDICATION
     Route: 048
  8. LEVOTHYROX [Suspect]
     Indication: GOITRE
     Route: 048
  9. NOVONORM [Suspect]
     Indication: TYPE 2 DIABETES MELLITUS
     Route: 048
  10. CELIPROLOL [Suspect]
     Indication: ISCHAEMIC CARDIOMYOPATHY
     Route: 048

REACTIONS (4)
  - ANGIOEDEMA [None]
  - DYSPHAGIA [None]
  - LOCALISED OEDEMA [None]
  - TONGUE OEDEMA [None]
